FAERS Safety Report 7358411-0 (Version None)
Quarter: 2011Q1

REPORT INFORMATION
  Report Type: 
  Country: None (occurrence: None)
  Receive Date: 20110317
  Receipt Date: 20110309
  Transmission Date: 20110831
  Serious: Yes (Hospitalization)
  Sender: FDA-Public Use
  Company Number: US-SANOFI-AVENTIS-2011SA015217

PATIENT
  Age: 72 Year
  Sex: Male

DRUGS (3)
  1. PLAVIX [Suspect]
     Dates: start: 20110305
  2. PLAVIX [Suspect]
     Route: 048
     Dates: end: 20110301
  3. PLAVIX [Suspect]

REACTIONS (2)
  - GASTRIC ULCER [None]
  - EAR DISCOMFORT [None]
